FAERS Safety Report 5141140-1 (Version None)
Quarter: 2006Q4

REPORT INFORMATION
  Report Type: 
  Country: None (occurrence: None)
  Receive Date: 20061101
  Receipt Date: 20061023
  Transmission Date: 20070319
  Serious: Yes (Other)
  Sender: FDA-Public Use
  Company Number: US-AVENTIS-200618771US

PATIENT
  Age: 51 Year
  Sex: Female

DRUGS (2)
  1. KETEK [Suspect]
     Indication: CHRONIC SINUSITIS
     Route: 048
     Dates: start: 20060622, end: 20060701
  2. VALTREX [Concomitant]
     Dosage: DOSE: UNKNOWN

REACTIONS (5)
  - ALANINE AMINOTRANSFERASE INCREASED [None]
  - ASPARTATE AMINOTRANSFERASE INCREASED [None]
  - FOOD ALLERGY [None]
  - HEPATIC ENZYME INCREASED [None]
  - URTICARIA [None]
